FAERS Safety Report 8828295 (Version 3)
Quarter: 2013Q4

REPORT INFORMATION
  Report Type: Spontaneous
  Country: GB (occurrence: GB)
  Receive Date: 20121005
  Receipt Date: 20131008
  Transmission Date: 20140711
  Serious: Yes (Other)
  Sender: FDA-Public Use
  Company Number: GB-RANBAXY-2012R1-60554

PATIENT
  Sex: Male
  Weight: 107.9 kg

DRUGS (2)
  1. CLOPIDOGREL [Suspect]
     Indication: OVERWEIGHT
     Dosage: UNK
     Route: 048
     Dates: start: 20120610, end: 20120912
  2. SIMVASTATIN [Suspect]
     Indication: OVERWEIGHT
     Dosage: UNK
     Route: 048
     Dates: start: 20120610, end: 20120912

REACTIONS (3)
  - Erectile dysfunction [Unknown]
  - Neuropathy peripheral [Unknown]
  - Tinnitus [Unknown]
